FAERS Safety Report 21811029 (Version 2)
Quarter: 2023Q1

REPORT INFORMATION
  Report Type: Report from Study
  Country: US (occurrence: US)
  Receive Date: 20230103
  Receipt Date: 20230127
  Transmission Date: 20230418
  Serious: Yes (Hospitalization)
  Sender: FDA-Public Use
  Company Number: US-GILEAD-2022-0611333

PATIENT
  Sex: Female

DRUGS (4)
  1. AMBRISENTAN [Suspect]
     Active Substance: AMBRISENTAN
     Indication: Pulmonary arterial hypertension
     Dosage: 5 MG, QD
     Route: 065
     Dates: start: 20220325
  2. ADCIRCA [Concomitant]
     Active Substance: TADALAFIL
  3. ELIQUIS [Concomitant]
     Active Substance: APIXABAN
  4. TADALAFIL [Concomitant]
     Active Substance: TADALAFIL

REACTIONS (8)
  - Cardiac disorder [Unknown]
  - Oxygen saturation decreased [Unknown]
  - Fluid retention [Unknown]
  - Dyspnoea [Unknown]
  - Oxygen consumption [Unknown]
  - Abdominal distension [Unknown]
  - Cough [Unknown]
  - Gait disturbance [Unknown]
